APPROVED DRUG PRODUCT: FENOFIBRATE (MICRONIZED)
Active Ingredient: FENOFIBRATE
Strength: 43MG
Dosage Form/Route: CAPSULE;ORAL
Application: A201748 | Product #001
Applicant: SUN PHARMACEUTICAL INDUSTRIES LTD
Approved: Oct 31, 2014 | RLD: No | RS: No | Type: DISCN